FAERS Safety Report 5356312-0 (Version None)
Quarter: 2007Q2

REPORT INFORMATION
  Report Type: 
  Country: None (occurrence: None)
  Receive Date: 20070613
  Receipt Date: 20070607
  Transmission Date: 20071010
  Serious: Yes (Life-Threatening, Hospitalization)
  Sender: FDA-Public Use
  Company Number: US-GILEAD-2007-0012417

PATIENT
  Sex: Male
  Weight: 64.468 kg

DRUGS (3)
  1. VIREAD [Suspect]
     Indication: HIV INFECTION
  2. FOSCARNET [Suspect]
  3. TMC125 [Suspect]
     Indication: HIV INFECTION
     Route: 048
     Dates: start: 20070509, end: 20070526

REACTIONS (2)
  - RENAL FAILURE [None]
  - SEPSIS [None]
